FAERS Safety Report 17859906 (Version 1)
Quarter: 2020Q2

REPORT INFORMATION
  Report Type: Spontaneous
  Country: US (occurrence: US)
  Receive Date: 20200604
  Receipt Date: 20200604
  Transmission Date: 20200714
  Serious: Yes (Death, Hospitalization, Other)
  Sender: FDA-Public Use
  Company Number: US-SUN PHARMACEUTICAL INDUSTRIES LTD-2020R1-248968

PATIENT
  Age: 60 Year
  Sex: Male

DRUGS (5)
  1. ALEMTUZUMAB [Suspect]
     Active Substance: ALEMTUZUMAB
     Indication: IMMUNOSUPPRESSION
     Dosage: UNK
     Route: 065
  2. TACROLIMUS. [Suspect]
     Active Substance: TACROLIMUS
     Indication: IMMUNOSUPPRESSION
     Dosage: UNK
     Route: 065
  3. THYMOGLOBULIN [Suspect]
     Active Substance: LAPINE T-LYMPHOCYTE IMMUNE GLOBULIN
     Indication: IMMUNOSUPPRESSION
     Dosage: UNK
     Route: 065
  4. MYCOPHENOLATE [Suspect]
     Active Substance: MYCOPHENOLIC ACID
     Indication: IMMUNOSUPPRESSION
     Dosage: UNK
     Route: 065
  5. PREDNISONE. [Suspect]
     Active Substance: PREDNISONE
     Indication: IMMUNOSUPPRESSION
     Dosage: UNK
     Route: 065

REACTIONS (15)
  - Herpes zoster cutaneous disseminated [Unknown]
  - Pneumonia fungal [Unknown]
  - Atypical mycobacterial pneumonia [Unknown]
  - Pancytopenia [Unknown]
  - Retinitis [Unknown]
  - Hypogammaglobulinaemia [Unknown]
  - Pneumonia influenzal [Unknown]
  - Infection parasitic [Fatal]
  - Transplant rejection [Unknown]
  - Lymphopenia [Unknown]
  - Bacterial sepsis [Unknown]
  - Aspergillus infection [Unknown]
  - Microsporidia infection [Fatal]
  - Sinusitis [Unknown]
  - Pneumonia cytomegaloviral [Unknown]
